FAERS Safety Report 23453732 (Version 1)
Quarter: 2024Q1

REPORT INFORMATION
  Report Type: Report from Study
  Country: KR (occurrence: KR)
  Receive Date: 20240129
  Receipt Date: 20240129
  Transmission Date: 20240409
  Serious: Yes (Hospitalization, Other)
  Sender: FDA-Public Use
  Company Number: KR-ABBVIE-5602674

PATIENT
  Age: 61 Year
  Sex: Male

DRUGS (1)
  1. HUMIRA [Suspect]
     Active Substance: ADALIMUMAB
     Indication: Axial spondyloarthritis
     Route: 058
     Dates: end: 20231002

REACTIONS (3)
  - Volvulus [Unknown]
  - Gastrointestinal pain [Unknown]
  - Neoplasm malignant [Not Recovered/Not Resolved]

NARRATIVE: CASE EVENT DATE: 20230801
